FAERS Safety Report 6981186-1 (Version None)
Quarter: 2010Q3

REPORT INFORMATION
  Report Type: 
  Country: None (occurrence: None)
  Receive Date: 20100914
  Receipt Date: 20100810
  Transmission Date: 20110219
  Serious: No
  Sender: FDA-Public Use
  Company Number: US-PFIZER INC-2010100430

PATIENT
  Age: 33 Year
  Sex: Male
  Weight: 99.773 kg

DRUGS (5)
  1. GEMFIBROZIL [Suspect]
     Indication: BLOOD TRIGLYCERIDES INCREASED
     Dosage: 160 MG, 1X/DAY
     Route: 048
     Dates: start: 20100601
  2. TRICOR [Suspect]
     Indication: BLOOD TRIGLYCERIDES INCREASED
     Dosage: 200 MG, 1X/DAY
     Route: 048
     Dates: start: 20091101
  3. EXENATIDE [Concomitant]
     Indication: DIABETES MELLITUS
     Dosage: UNK
  4. HYDROCHLOROTHIAZIDE [Concomitant]
     Dosage: UNK
  5. LISINOPRIL [Concomitant]
     Indication: HYPERTENSION
     Dosage: UNK

REACTIONS (6)
  - BLOOD GLUCOSE DECREASED [None]
  - DRUG INEFFECTIVE [None]
  - OVERDOSE [None]
  - PRURITUS [None]
  - SOMNOLENCE [None]
  - URTICARIA [None]
